FAERS Safety Report 25123322 (Version 1)
Quarter: 2025Q1

REPORT INFORMATION
  Report Type: Spontaneous
  Country: US (occurrence: US)
  Receive Date: 20250326
  Receipt Date: 20250326
  Transmission Date: 20250409
  Serious: No
  Sender: GRIFOLS
  Company Number: US-IGSA-BIG0031687

PATIENT
  Age: 52 Year
  Sex: Female

DRUGS (30)
  1. PROLASTIN-C LIQUID [Suspect]
     Active Substance: .ALPHA.1-PROTEINASE INHIBITOR HUMAN
     Indication: Alpha-1 antitrypsin deficiency
     Dosage: 8496 MILLIGRAM, Q.WK.
     Route: 042
  2. ASPIRIN\CLOPIDOGREL BISULFATE [Concomitant]
     Active Substance: ASPIRIN\CLOPIDOGREL BISULFATE
  3. WEGOVY [Concomitant]
     Active Substance: SEMAGLUTIDE
  4. ASPIRIN [Concomitant]
     Active Substance: ASPIRIN
  5. ALLEGRA ALLERGY [Concomitant]
     Active Substance: FEXOFENADINE HYDROCHLORIDE
  6. EPINEPHRINE [Concomitant]
     Active Substance: EPINEPHRINE
  7. DEXTROSE\SODIUM CHLORIDE [Concomitant]
     Active Substance: DEXTROSE\SODIUM CHLORIDE
  8. DICYCLOMINE HYDROCHLORIDE [Concomitant]
     Active Substance: DICYCLOMINE HYDROCHLORIDE
  9. NALOXONE HCL DIHYDRATE [Concomitant]
  10. ATORVASTATIN CALCIUM [Concomitant]
     Active Substance: ATORVASTATIN CALCIUM
  11. COLCHICINE [Concomitant]
     Active Substance: COLCHICINE
  12. ALLOPURINOL [Concomitant]
     Active Substance: ALLOPURINOL
  13. LEVOTHYROXINE SODIUM [Concomitant]
     Active Substance: LEVOTHYROXINE SODIUM
  14. PAROXETINE HYDROCHLORIDE [Concomitant]
     Active Substance: PAROXETINE HYDROCHLORIDE
  15. FLUTICASONE PROPIONATE [Concomitant]
     Active Substance: FLUTICASONE PROPIONATE
  16. ASCORBIC ACID [Concomitant]
     Active Substance: ASCORBIC ACID
  17. OMEPRAZOLE [Concomitant]
     Active Substance: OMEPRAZOLE
  18. CETIRIZINE HCL [Concomitant]
     Active Substance: CETIRIZINE HYDROCHLORIDE
  19. MONTELUKAST SODIUM AND LEVOCETIRIZINE DIHYDROCHLORIDE [Concomitant]
  20. TOPIRAMATE [Concomitant]
     Active Substance: TOPIRAMATE
  21. BACLOFEN [Concomitant]
     Active Substance: BACLOFEN
  22. CALCIUM + VITAMIN D3 + K2 [Concomitant]
  23. ATENOLOL AL [Concomitant]
  24. GABAPENTIN [Concomitant]
     Active Substance: GABAPENTIN
  25. FISH OIL [COD-LIVER OIL] [Concomitant]
  26. LEVOMENTHOL [Concomitant]
     Active Substance: LEVOMENTHOL
  27. TYLENOL EXTRA STRENGTH [Concomitant]
     Active Substance: ACETAMINOPHEN
  28. OLANZAPINE [Concomitant]
     Active Substance: OLANZAPINE
  29. MELOXICAM AN [Concomitant]
  30. OXYGEN [Concomitant]
     Active Substance: OXYGEN

REACTIONS (1)
  - COVID-19 [Unknown]

NARRATIVE: CASE EVENT DATE: 20241007
